FAERS Safety Report 15669578 (Version 3)
Quarter: 2019Q2

REPORT INFORMATION
  Report Type: Spontaneous
  Country: US (occurrence: US)
  Receive Date: 20181129
  Receipt Date: 20190617
  Transmission Date: 20190711
  Serious: Yes (Hospitalization, Other)
  Sender: FDA-Public Use
  Company Number: US-PFIZER INC-2018488061

PATIENT
  Age: 41 Year
  Sex: Female

DRUGS (1)
  1. GENOTROPIN [Suspect]
     Active Substance: SOMATROPIN
     Dosage: 0.4 MG, DAILY
     Dates: start: 20151010

REACTIONS (5)
  - Renal impairment [Unknown]
  - Pyrexia [Unknown]
  - Nephrolithiasis [Unknown]
  - Sepsis [Unknown]
  - Asthenia [Unknown]
